FAERS Safety Report 13346650 (Version 1)
Quarter: 2017Q1

REPORT INFORMATION
  Report Type: Spontaneous
  Country: JP (occurrence: JP)
  Receive Date: 20170317
  Receipt Date: 20170317
  Transmission Date: 20170428
  Serious: Yes (Hospitalization, Other)
  Sender: FDA-Public Use
  Company Number: JP-PFIZER INC-2017108937

PATIENT
  Age: 87 Year
  Sex: Female
  Weight: 35 kg

DRUGS (3)
  1. SOLANAX [Suspect]
     Active Substance: ALPRAZOLAM
     Dosage: 0.4 MG, 3X/DAY
     Route: 048
     Dates: end: 20170308
  2. DEPAS [Concomitant]
     Active Substance: ETIZOLAM
  3. SOLANAX [Suspect]
     Active Substance: ALPRAZOLAM
     Dosage: 0.4 MG, 3X/DAY
     Route: 048
     Dates: start: 1997

REACTIONS (11)
  - Gastric haemorrhage [Unknown]
  - Anaemia [Unknown]
  - Epilepsy [Unknown]
  - Tremor [Unknown]
  - Insomnia [Unknown]
  - Withdrawal syndrome [Unknown]
  - Condition aggravated [Unknown]
  - Aphasia [Unknown]
  - Neuropsychiatric symptoms [Unknown]
  - Anxiety [Unknown]
  - Cardio-respiratory arrest [Unknown]
